FAERS Safety Report 7178707-5 (Version None)
Quarter: 2010Q4

REPORT INFORMATION
  Report Type: 
  Country: None (occurrence: None)
  Receive Date: 20101221
  Receipt Date: 20101213
  Transmission Date: 20110411
  Serious: Yes (Other)
  Sender: FDA-Public Use
  Company Number: US-RB-014941-10

PATIENT
  Sex: Female
  Weight: 78 kg

DRUGS (2)
  1. MUCINEX DM [Suspect]
     Dosage: PATIENT CRUSHED ONE PILL AND TOOK IT.
     Route: 048
  2. ADVAIR [Concomitant]
     Indication: ASTHMA

REACTIONS (11)
  - ANXIETY [None]
  - CHEST DISCOMFORT [None]
  - CHOKING [None]
  - DIZZINESS [None]
  - DYSPNOEA [None]
  - FEELING ABNORMAL [None]
  - HOT FLUSH [None]
  - INSOMNIA [None]
  - NAUSEA [None]
  - WHEEZING [None]
  - WRONG TECHNIQUE IN DRUG USAGE PROCESS [None]
